FAERS Safety Report 8309376-6 (Version None)
Quarter: 2012Q2

REPORT INFORMATION
  Report Type: 
  Country: None (occurrence: None)
  Receive Date: 20120418
  Receipt Date: 20120418
  Transmission Date: 20120825
  Serious: Yes (Other)
  Sender: FDA-Public Use
  Company Number: None

PATIENT
  Age: 56 Year
  Sex: Female

DRUGS (1)
  1. FORTEO [Suspect]
     Dosage: 20MCG DAILY SQ
     Route: 058
     Dates: start: 20111110, end: 20120330

REACTIONS (5)
  - HEADACHE [None]
  - NAUSEA [None]
  - FATIGUE [None]
  - DIZZINESS [None]
  - CHEST DISCOMFORT [None]
